FAERS Safety Report 12538491 (Version 1)
Quarter: 2016Q3

REPORT INFORMATION
  Report Type: Other
  Country: US (occurrence: US)
  Receive Date: 20160707
  Receipt Date: 20160707
  Transmission Date: 20161109
  Serious: No
  Sender: FDA-Public Use
  Company Number: US-LUPIN PHARMACEUTICALS INC.-2016-02068

PATIENT
  Age: 16 Year
  Sex: Male

DRUGS (3)
  1. ADAPALENE-BENZOYL PEROXIDE [Concomitant]
     Indication: ACNE
     Route: 061
  2. DOXYCYCLINE. [Suspect]
     Active Substance: DOXYCYCLINE
     Indication: ACNE
     Route: 048
  3. DOXYCYCLINE. [Suspect]
     Active Substance: DOXYCYCLINE
     Route: 048

REACTIONS (1)
  - Photosensitivity reaction [Recovered/Resolved]
